FAERS Safety Report 5469626-0 (Version None)
Quarter: 2007Q3

REPORT INFORMATION
  Report Type: 
  Country: None (occurrence: None)
  Receive Date: 20070925
  Receipt Date: 20070925
  Transmission Date: 20080115
  Serious: Yes (Life-Threatening)
  Sender: FDA-Public Use
  Company Number: None

PATIENT
  Age: 37 Year
  Sex: Female
  Weight: 131.8 kg

DRUGS (2)
  1. BACTRIM [Suspect]
     Indication: PNEUMOCYSTIS JIROVECI PNEUMONIA
     Dosage: BACTRIM IV Q12H IV
     Route: 042
     Dates: start: 20070904, end: 20070906
  2. SULFADIAZEIN 1500MG [Suspect]
     Dosage: SULFADIAZINE 1500MG Q6H PO
     Route: 048

REACTIONS (1)
  - STEVENS-JOHNSON SYNDROME [None]
